FAERS Safety Report 4589598-0 (Version None)
Quarter: 2005Q1

REPORT INFORMATION
  Report Type: 
  Country: None (occurrence: None)
  Receive Date: 20050216
  Receipt Date: 20050203
  Transmission Date: 20050727
  Serious: Yes (Hospitalization)
  Sender: FDA-Public Use
  Company Number: 2005027059

PATIENT
  Age: 68 Year
  Sex: Female

DRUGS (1)
  1. EPIRUBICIN [Suspect]
     Indication: BREAST CANCER
     Dosage: INTRAVENOUS
     Route: 042
     Dates: start: 20041012, end: 20041116

REACTIONS (3)
  - FATIGUE [None]
  - PHARYNGOLARYNGEAL PAIN [None]
  - PYREXIA [None]
